FAERS Safety Report 14709791 (Version 1)
Quarter: 2018Q2

REPORT INFORMATION
  Report Type: Spontaneous
  Country: BR (occurrence: BR)
  Receive Date: 20180403
  Receipt Date: 20180403
  Transmission Date: 20180711
  Serious: Yes (Other)
  Sender: FDA-Public Use
  Company Number: BR-PFIZER INC-2018134898

PATIENT
  Sex: Male

DRUGS (1)
  1. AMLODIPINE BESILATE [Suspect]
     Active Substance: AMLODIPINE BESYLATE

REACTIONS (13)
  - Poisoning [Unknown]
  - Product name confusion [Unknown]
  - Wrong drug administered [Unknown]
  - Oedema peripheral [Recovering/Resolving]
  - Headache [Recovering/Resolving]
  - Arthralgia [Not Recovered/Not Resolved]
  - Blood pressure decreased [Unknown]
  - Eructation [Not Recovered/Not Resolved]
  - Hepatomegaly [Unknown]
  - Blood pressure fluctuation [Unknown]
  - Burning sensation [Not Recovered/Not Resolved]
  - Tachycardia [Unknown]
  - Dysphagia [Not Recovered/Not Resolved]

NARRATIVE: CASE EVENT DATE: 201803
